FAERS Safety Report 8854221 (Version 1)
Quarter: 2012Q4

REPORT INFORMATION
  Report Type: 
  Country: US (occurrence: US)
  Receive Date: 20121022
  Receipt Date: 20121022
  Transmission Date: 20130627
  Serious: No
  Sender: FDA-Public Use
  Company Number: US-ASTRAZENECA-2012SE76093

PATIENT
  Age: 56 Year
  Sex: Female

DRUGS (4)
  1. ATACAND [Suspect]
     Route: 048
  2. ATACAND [Suspect]
     Route: 048
  3. ATACAND [Suspect]
     Route: 048
  4. NEXIUM [Suspect]
     Route: 048

REACTIONS (1)
  - Cardiac failure congestive [Unknown]
